FAERS Safety Report 9233028 (Version 1)
Quarter: 2013Q1

REPORT INFORMATION
  Report Type: Spontaneous
  Country: US (occurrence: None)
  Receive Date: 20121031
  Receipt Date: 20121031
  Transmission Date: 20140127
  Serious: Yes (Other)
  Sender: FDA-Public Use
  Company Number: PHEH2012US014229

PATIENT
  Age: 42 Year
  Sex: Female

DRUGS (4)
  1. GILENYA (FTY)CAPSULE, 0.5MG [Suspect]
     Indication: MULTIPLE SCLEROSIS
     Route: 048
     Dates: start: 20111115, end: 201207
  2. BACLOFEN (BACLOFEN) [Concomitant]
  3. GABAPENTIN (GABAPENTIN) [Concomitant]
  4. BACTRIM [Concomitant]

REACTIONS (2)
  - Lymphocyte count decreased [None]
  - CD4 lymphocytes decreased [None]
